FAERS Safety Report 19496347 (Version 1)
Quarter: 2021Q3

REPORT INFORMATION
  Report Type: Spontaneous
  Country: US (occurrence: US)
  Receive Date: 20210702
  Receipt Date: 20210702
  Transmission Date: 20211014
  Serious: Yes (Death)
  Sender: FDA-Public Use
  Company Number: None

PATIENT
  Sex: Male
  Weight: 76.2 kg

DRUGS (22)
  1. LISINOPRIL. [Concomitant]
     Active Substance: LISINOPRIL
  2. LEVEMIR [Concomitant]
     Active Substance: INSULIN DETEMIR
  3. FISH OIL [Concomitant]
     Active Substance: FISH OIL
  4. MIDRODRONE, NYSTATIN, KCL ER, TOVIAZ, ZOFRAN, ZYTIGA, PREDNISONE [Concomitant]
  5. CALCIUM + VITAMIN D [Concomitant]
     Active Substance: CALCIUM\VITAMIN D
  6. FUROSEMIDE. [Concomitant]
     Active Substance: FUROSEMIDE
  7. HUMULIN NOS [Concomitant]
     Active Substance: INSULIN HUMAN
  8. ASPIRIN. [Concomitant]
     Active Substance: ASPIRIN
  9. SIMVASTATIN. [Concomitant]
     Active Substance: SIMVASTATIN
  10. PANTOPRAZOLE [Concomitant]
     Active Substance: PANTOPRAZOLE
  11. MULTIVITAMINS [Concomitant]
     Active Substance: VITAMINS
  12. LOMOTIL [Concomitant]
     Active Substance: ATROPINE SULFATE\DIPHENOXYLATE HYDROCHLORIDE
  13. MAGNESIUM OXIDE. [Concomitant]
     Active Substance: MAGNESIUM OXIDE
  14. SERTRALINE [Concomitant]
     Active Substance: SERTRALINE HYDROCHLORIDE
  15. METOPROLOL SUCCINATE ER [Concomitant]
     Active Substance: METOPROLOL SUCCINATE
  16. GLIPIZIDE XL [Concomitant]
     Active Substance: GLIPIZIDE
  17. MEGESTEROL ACETATE [Concomitant]
  18. AF INITOR [Concomitant]
  19. FLOMAX [Concomitant]
     Active Substance: TAMSULOSIN HYDROCHLORIDE
  20. JANUVIA [Concomitant]
     Active Substance: SITAGLIPTIN PHOSPHATE
  21. AFINITOR [Suspect]
     Active Substance: EVEROLIMUS
     Indication: PROSTATE CANCER
     Route: 048
  22. NOVOLOG [Concomitant]
     Active Substance: INSULIN ASPART

REACTIONS (1)
  - Death [None]
